FAERS Safety Report 17737133 (Version 1)
Quarter: 2020Q2

REPORT INFORMATION
  Report Type: Spontaneous
  Country: BE (occurrence: BE)
  Receive Date: 20200502
  Receipt Date: 20200502
  Transmission Date: 20200714
  Serious: Yes (Hospitalization)
  Sender: FDA-Public Use
  Company Number: BE-TEVA-2020-BE-1229113

PATIENT
  Sex: Female
  Weight: 56 kg

DRUGS (11)
  1. LENVIMA [Suspect]
     Active Substance: LENVATINIB
     Indication: PAPILLARY THYROID CANCER
     Route: 048
     Dates: start: 20191015, end: 20200121
  2. PANTOMED 40 MG [Concomitant]
     Active Substance: PANTOPRAZOLE SODIUM
     Dosage: 1 DOSAGE FORMS
     Route: 048
  3. LACLIMELLA 1 MG/2 MG [Concomitant]
     Dosage: 1 DOSAGE FORMS
     Route: 048
  4. L-THYROXINE CHRISTIAENS [Concomitant]
     Active Substance: LEVOTHYROXINE
     Dosage: (1 DF), BEFORE 21/11/19 : 75 UG/DAY, 21/11/19: 50 UG/DAY, 11/12/19: 75 UG/DAY, 03/01/20: 100 UG/DAY
     Route: 048
  5. BUSCOPAN [Concomitant]
     Active Substance: BUTYLSCOPOLAMINE BROMIDE
     Dosage: SELFMEDICATION: DEPENDING ON SYMPTOMS
  6. ATORVASTATINE 10 MG [Suspect]
     Active Substance: ATORVASTATIN
     Dosage: 1 DOSAGE FORMS DAILY; TAKEN IN THE EVENING
     Route: 048
  7. AMLOR [Concomitant]
     Active Substance: AMLODIPINE BESYLATE
     Dosage: 10/2019: 5 MG/DAY, 3/01/2020: 10MG/DAY (1 DOSAGE FORMS)
     Route: 048
  8. IMODIUM [Concomitant]
     Active Substance: LOPERAMIDE HYDROCHLORIDE
     Dosage: SELFMEDICATION: DEPENDING ON SYMPTOMS
  9. NOBITEN 5 MG [Concomitant]
     Dosage: 1 DOSAGE FORMS
     Route: 048
  10. BRUFEN [Concomitant]
     Active Substance: IBUPROFEN
     Dosage: SELFMEDICATION: DEPENDING ON SYMPTOMS
  11. LENVIMA [Suspect]
     Active Substance: LENVATINIB
     Route: 048
     Dates: start: 20191015, end: 20200121

REACTIONS (1)
  - Pancreatitis acute [Recovering/Resolving]

NARRATIVE: CASE EVENT DATE: 20200121
